FAERS Safety Report 6071935-1 (Version None)
Quarter: 2009Q1

REPORT INFORMATION
  Report Type: 
  Country: None (occurrence: None)
  Receive Date: 20090205
  Receipt Date: 20090205
  Transmission Date: 20090719
  Serious: No
  Sender: FDA-Public Use
  Company Number: None

PATIENT
  Age: 94 Year
  Sex: Female

DRUGS (1)
  1. IMDUR [Suspect]

REACTIONS (3)
  - ALOPECIA [None]
  - RASH [None]
  - VISUAL IMPAIRMENT [None]
